FAERS Safety Report 5018467-7 (Version None)
Quarter: 2006Q2

REPORT INFORMATION
  Report Type: 
  Country: None (occurrence: None)
  Receive Date: 20060530
  Receipt Date: 20050413
  Transmission Date: 20061013
  Serious: Yes (Other)
  Sender: FDA-Public Use
  Company Number: 2005059097

PATIENT
  Age: 51 Year
  Sex: Female
  Weight: 75 kg

DRUGS (4)
  1. LYRICA [Suspect]
     Indication: HEADACHE
     Dosage: 150 MG, ORAL
     Route: 048
     Dates: start: 20041222, end: 20050225
  2. GARLIC          (GARLIC) [Concomitant]
  3. OMEGA       (CONVALLARIA MAJALIS, CRATAEGUS, PROXYPHYLLINE) [Concomitant]
  4. GRAPE SEED             (GRAPE SEED) [Concomitant]

REACTIONS (6)
  - DEPRESSION [None]
  - DIZZINESS [None]
  - DRUG WITHDRAWAL SYNDROME [None]
  - INSOMNIA [None]
  - MALAISE [None]
  - PRURITUS [None]
